FAERS Safety Report 7653960-X (Version None)
Quarter: 2011Q3

REPORT INFORMATION
  Report Type: 
  Country: None (occurrence: None)
  Receive Date: 20110803
  Receipt Date: 20110801
  Transmission Date: 20111222
  Serious: Yes (Other)
  Sender: FDA-Public Use
  Company Number: BR-PFIZER INC-2011175683

PATIENT
  Age: 65 Year
  Sex: Male
  Weight: 70 kg

DRUGS (5)
  1. ASPIRIN [Concomitant]
     Indication: CARDIAC OPERATION
     Dosage: UNKNOWN DOSE, 1X/DAY
  2. CARVEDILOL [Concomitant]
     Indication: CARDIAC OPERATION
     Dosage: UNKNOWN DOSE, 1X/DAY
  3. VIAGRA [Suspect]
     Dosage: 50 MG, 1 HOUR BEFORE SEXUAL INTERCOURSE
     Route: 048
  4. LIPLESS [Concomitant]
     Indication: BLOOD TRIGLYCERIDES
     Dosage: UNKNOWN DOSE, 1X/DAY
  5. SIMVASTATIN [Concomitant]
     Indication: BLOOD CHOLESTEROL
     Dosage: UNKNOWN DOSE, 1X/DAY

REACTIONS (2)
  - VASCULAR GRAFT [None]
  - DRUG INEFFECTIVE [None]
